FAERS Safety Report 7119375-8 (Version None)
Quarter: 2010Q4

REPORT INFORMATION
  Report Type: 
  Country: None (occurrence: None)
  Receive Date: 20101123
  Receipt Date: 20101118
  Transmission Date: 20110411
  Serious: Yes (Other)
  Sender: FDA-Public Use
  Company Number: US-US-EMD SERONO, INC.-237598K09USA

PATIENT
  Sex: Female
  Weight: 125 kg

DRUGS (15)
  1. REBIF [Suspect]
     Indication: MULTIPLE SCLEROSIS
     Route: 058
     Dates: start: 20080620
  2. NEXIUM [Concomitant]
  3. WELLBUTRIN SR [Concomitant]
  4. VALTREX [Concomitant]
  5. L-LYSINE [Concomitant]
  6. ZOVIRAX [Concomitant]
     Route: 065
  7. DARVOCET-N 100 [Concomitant]
  8. ADVIL [Concomitant]
  9. ADVAIR DISKUS 100/50 [Concomitant]
  10. ALBUTEROL [Concomitant]
     Route: 055
  11. ZETIA [Concomitant]
  12. ALLEGRA [Concomitant]
  13. NEURONTIN [Concomitant]
  14. FLEXERIL [Concomitant]
  15. PROVIGIL [Concomitant]

REACTIONS (4)
  - BASAL CELL CARCINOMA [None]
  - BREAST CANCER STAGE II [None]
  - MASTITIS [None]
  - RADIATION INJURY [None]
